FAERS Safety Report 23286482 (Version 1)
Quarter: 2023Q4

REPORT INFORMATION
  Report Type: Spontaneous
  Country: US (occurrence: US)
  Receive Date: 20231212
  Receipt Date: 20231212
  Transmission Date: 20240109
  Serious: Yes (Hospitalization, Other)
  Sender: FDA-Public Use
  Company Number: US-BRISTOL-MYERS SQUIBB COMPANY-2023-178901

PATIENT
  Age: 71 Year
  Sex: Female
  Weight: 41.73 kg

DRUGS (4)
  1. REVLIMID [Suspect]
     Active Substance: LENALIDOMIDE
     Indication: Plasma cell myeloma
     Dosage: DOSE: 10MG; FREQUENCY: DAILY X 21 DAYS, THEN 7 DAYS OFF. FORM STRENGTH: 10MG
     Route: 048
     Dates: start: 202009
  2. REVLIMID [Suspect]
     Active Substance: LENALIDOMIDE
     Dosage: DOSE: 5MG; FREQUENCY: DAILY X 21 DAYS, THEN 7 DAYS OFF. FORM STRENGTH: 5MG
     Route: 048
     Dates: start: 202109
  3. DARATUMUMAB [Concomitant]
     Active Substance: DARATUMUMAB
     Indication: Plasma cell myeloma
  4. ASPIRIN [Concomitant]
     Active Substance: ASPIRIN
     Indication: Thrombosis prophylaxis

REACTIONS (1)
  - Pneumonia [Unknown]
